FAERS Safety Report 11927324 (Version 8)
Quarter: 2016Q3

REPORT INFORMATION
  Report Type: Report from Study
  Country: US (occurrence: US)
  Receive Date: 20160119
  Receipt Date: 20160906
  Transmission Date: 20161109
  Serious: Yes (Hospitalization, Other)
  Sender: FDA-Public Use
  Company Number: US-BAYER-2014-152266

PATIENT
  Age: 35 Year
  Sex: Female
  Weight: 122.4 kg

DRUGS (11)
  1. ADEMPAS [Suspect]
     Active Substance: RIOCIGUAT
     Indication: COR PULMONALE
     Dosage: 0.5 MG, TID
     Route: 048
  2. ADEMPAS [Suspect]
     Active Substance: RIOCIGUAT
     Indication: COR PULMONALE
     Dosage: 1 MG, TID
     Route: 048
  3. ADEMPAS [Suspect]
     Active Substance: RIOCIGUAT
     Indication: COR PULMONALE
     Dosage: 2 MG, TID
     Route: 048
  4. ADEMPAS [Suspect]
     Active Substance: RIOCIGUAT
     Indication: COR PULMONALE
     Dosage: 1.5 MG, TID
     Route: 048
  5. ADEMPAS [Suspect]
     Active Substance: RIOCIGUAT
     Indication: COR PULMONALE
     Dosage: UNK
     Dates: start: 20140818
  6. ADEMPAS [Suspect]
     Active Substance: RIOCIGUAT
     Indication: COR PULMONALE
     Dosage: 1 MG, TID
     Route: 048
  7. ADEMPAS [Suspect]
     Active Substance: RIOCIGUAT
     Indication: PULMONARY HYPERTENSION
     Dosage: 0.5 MG, TID
     Route: 048
     Dates: start: 20140815
  8. ADEMPAS [Suspect]
     Active Substance: RIOCIGUAT
     Indication: COR PULMONALE
     Dosage: 1.5 MG, TID
     Route: 048
     Dates: start: 20140818
  9. ADEMPAS [Suspect]
     Active Substance: RIOCIGUAT
     Indication: COR PULMONALE
     Dosage: UNK
     Dates: start: 20150527
  10. ADEMPAS [Suspect]
     Active Substance: RIOCIGUAT
     Indication: COR PULMONALE
     Dosage: 2 MG, TID
  11. ADEMPAS [Suspect]
     Active Substance: RIOCIGUAT
     Indication: COR PULMONALE
     Dosage: 1.5 MG, TID
     Route: 048

REACTIONS (29)
  - Hospitalisation [None]
  - Exchange blood transfusion [None]
  - Oxygen saturation decreased [None]
  - Headache [Recovering/Resolving]
  - Sickle cell anaemia [None]
  - Oedema peripheral [Unknown]
  - Constipation [None]
  - Transfusion [None]
  - Blood pressure decreased [None]
  - Headache [None]
  - Flushing [None]
  - Sickle cell anaemia with crisis [None]
  - Rash [None]
  - Oedema [None]
  - Fatigue [None]
  - Dyspnoea [None]
  - Oxygen saturation decreased [None]
  - Joint swelling [None]
  - Dysarthria [None]
  - Fluid retention [None]
  - Device related infection [Unknown]
  - Dizziness [None]
  - Hypoacusis [None]
  - Arthralgia [None]
  - Central venous catheterisation [None]
  - Sickle cell anaemia with crisis [Unknown]
  - Auditory disorder [None]
  - Oedema peripheral [None]
  - Haemoglobin decreased [None]

NARRATIVE: CASE EVENT DATE: 201607
